FAERS Safety Report 23141721 (Version 1)
Quarter: 2023Q4

REPORT INFORMATION
  Report Type: Spontaneous
  Country: ES (occurrence: ES)
  Receive Date: 20231103
  Receipt Date: 20231103
  Transmission Date: 20240109
  Serious: Yes (Hospitalization, Other)
  Sender: FDA-Public Use
  Company Number: ES-AEMPS-1442000

PATIENT
  Age: 62 Year
  Sex: Female

DRUGS (3)
  1. IBUPROFEN [Interacting]
     Active Substance: IBUPROFEN
     Indication: Pain
     Dosage: 600 MILLIGRAM, 3 TIMES A DAY
     Route: 042
     Dates: start: 20230907, end: 20230914
  2. DEXKETOPROFEN [Interacting]
     Active Substance: DEXKETOPROFEN
     Indication: Pain
     Dosage: 50 MILLIGRAM, 3 TIMES A DAY
     Route: 042
     Dates: start: 20230905, end: 20230907
  3. CLOXACILLIN [Interacting]
     Active Substance: CLOXACILLIN
     Indication: Osteomyelitis
     Dosage: UNK
     Route: 042
     Dates: start: 20230825, end: 20230912

REACTIONS (1)
  - Acute pulmonary oedema [Recovered/Resolved]

NARRATIVE: CASE EVENT DATE: 20230908
